FAERS Safety Report 9501319 (Version 1)
Quarter: 2013Q3

REPORT INFORMATION
  Report Type: Spontaneous
  Country: ID (occurrence: ID)
  Receive Date: 20130905
  Receipt Date: 20130905
  Transmission Date: 20140515
  Serious: Yes (Death)
  Sender: FDA-Public Use
  Company Number: ID-ASTRAZENECA-2013SE67027

PATIENT
  Sex: Male
  Weight: 65 kg

DRUGS (2)
  1. BRILINTA [Suspect]
     Dosage: 180 MG LOADING DOSE
     Route: 048
  2. ASPILET [Concomitant]

REACTIONS (2)
  - Tachypnoea [Fatal]
  - Pulmonary oedema [Fatal]
